FAERS Safety Report 9119665 (Version 2)
Quarter: 2013Q1

REPORT INFORMATION
  Report Type: Spontaneous
  Country: US (occurrence: None)
  Receive Date: 20130130
  Receipt Date: 20130311
  Transmission Date: 20140127
  Serious: Yes (Other)
  Sender: FDA-Public Use
  Company Number: AUR-APL-2013-01065

PATIENT
  Age: 78 Year
  Sex: Female
  Weight: 90 kg

DRUGS (4)
  1. LOSARTAN POTASSIUM+ HYDROCHLOROTHIAZIDE (HYDROCHLOROTHIAZIDE, LOSARTAN) [V.15.1] [Suspect]
     Indication: PRODUCT USED FOR UNKNOWN INDICATION
     Dates: start: 2011
  2. XALATAN (LATANOPROST) [Suspect]
     Indication: EYE DISORDER
     Dosage: 1 DROP IN EACH EYE DAILY,OPHTHALMIC
     Route: 047
     Dates: start: 2011
  3. COREG (CARVEDILOL) [Suspect]
     Indication: BRADYCARDIA
     Dosage: 12.5 MG (6.25 MG,2 IN 1 D),UNKNOWN
     Dates: start: 2011
  4. COREG (CARVEDILOL) [Suspect]
     Indication: CHEST PAIN
     Dosage: 12.5 MG (6.25 MG,2 IN 1 D),UNKNOWN
     Dates: start: 2011

REACTIONS (1)
  - Rotator cuff syndrome [None]
